FAERS Safety Report 11135585 (Version 1)
Quarter: 2015Q2

REPORT INFORMATION
  Report Type: Spontaneous
  Country: US (occurrence: None)
  Receive Date: 20150522
  Receipt Date: 20150522
  Transmission Date: 20150821
  Serious: Yes (Other)
  Sender: FDA-Public Use
  Company Number: None

PATIENT
  Age: 21 Year
  Sex: Female

DRUGS (1)
  1. HUMIRA [Suspect]
     Active Substance: ADALIMUMAB
     Indication: CROHN^S DISEASE
     Dosage: ROUTE: SUBCUTANEOUS  DOSE FORM: INJECTABLE  FREQUENCY: Q O WEEK
     Route: 058
     Dates: start: 201504

REACTIONS (2)
  - Migraine [None]
  - Nausea [None]

NARRATIVE: CASE EVENT DATE: 20150516
